FAERS Safety Report 15597605 (Version 1)
Quarter: 2018Q4

REPORT INFORMATION
  Report Type: Spontaneous
  Country: CH (occurrence: CH)
  Receive Date: 20181108
  Receipt Date: 20181108
  Transmission Date: 20190205
  Serious: Yes (Other)
  Sender: FDA-Public Use
  Company Number: CH-REGENERON PHARMACEUTICALS, INC.-2018-26081

PATIENT

DRUGS (1)
  1. EYLEA [Suspect]
     Active Substance: AFLIBERCEPT
     Indication: AGE-RELATED MACULAR DEGENERATION
     Dosage: UNK
     Route: 031
     Dates: start: 20180605

REACTIONS (3)
  - Wrong technique in product usage process [Unknown]
  - Retinal oedema [Unknown]
  - Non-infectious endophthalmitis [Recovered/Resolved]

NARRATIVE: CASE EVENT DATE: 20180606
